FAERS Safety Report 21734301 (Version 1)
Quarter: 2022Q4

REPORT INFORMATION
  Report Type: Report from Study
  Country: US (occurrence: US)
  Receive Date: 20221215
  Receipt Date: 20221215
  Transmission Date: 20230113
  Serious: Yes (Other)
  Sender: FDA-Public Use
  Company Number: US-HORIZON THERAPEUTICS-HZN-2022-008708

PATIENT

DRUGS (8)
  1. KRYSTEXXA [Suspect]
     Active Substance: PEGLOTICASE
     Indication: Product used for unknown indication
     Dosage: FIRST INFUSION (8 MG/ML INTO 250 ML IV BAG WITH 0.9% SODIUM CHLORIDE)
     Route: 042
     Dates: start: 20221102
  2. METHOTREXATE [Concomitant]
     Active Substance: METHOTREXATE
  3. FOLIC ACID [Concomitant]
     Active Substance: FOLIC ACID
     Dosage: 1 TABLET ORALLY DAILY
     Route: 048
  4. ACETAMINOPHEN\HYDROCODONE [Concomitant]
     Active Substance: ACETAMINOPHEN\HYDROCODONE
     Dosage: 5/325 MG 1 TABLET ORALLY THREE TIMES A DAY PRN
  5. PREDNISONE [Concomitant]
     Active Substance: PREDNISONE
     Dosage: 10 MG 1 TABLET ORALLY 2 TIMES PER DAY PRN
  6. TYLENOL [Concomitant]
     Active Substance: ACETAMINOPHEN
     Dosage: 2 TABLETS
  7. SOLU-MEDROL [Concomitant]
     Active Substance: METHYLPREDNISOLONE SODIUM SUCCINATE
     Dosage: 125 MG
  8. SODIUM CHLORIDE [Concomitant]
     Active Substance: SODIUM CHLORIDE

REACTIONS (19)
  - Seizure [Recovering/Resolving]
  - Dyspnoea [Recovered/Resolved]
  - Hot flush [Recovered/Resolved]
  - Erythema [Recovered/Resolved]
  - Dizziness [Recovering/Resolving]
  - Vision blurred [Recovering/Resolving]
  - Back pain [Unknown]
  - Pruritus [Recovered/Resolved]
  - Musculoskeletal chest pain [Recovered/Resolved]
  - Tremor [Recovered/Resolved]
  - Gastrooesophageal reflux disease [Recovered/Resolved]
  - Urticaria [Recovering/Resolving]
  - Blood uric acid abnormal [Recovered/Resolved]
  - Tachycardia [Recovering/Resolving]
  - Presyncope [Recovering/Resolving]
  - Blood pressure abnormal [Recovering/Resolving]
  - Chest discomfort [Recovering/Resolving]
  - Dyskinesia [Recovering/Resolving]
  - Synovitis [Unknown]

NARRATIVE: CASE EVENT DATE: 20220101
